FAERS Safety Report 24665026 (Version 1)
Quarter: 2024Q4

REPORT INFORMATION
  Report Type: Spontaneous
  Country: US (occurrence: US)
  Receive Date: 20241126
  Receipt Date: 20241126
  Transmission Date: 20250114
  Serious: No
  Sender: ABBVIE
  Company Number: US-ABBVIE-6010174

PATIENT
  Age: 65 Year
  Sex: Female

DRUGS (1)
  1. LATISSE [Suspect]
     Active Substance: BIMATOPROST
     Indication: Product used for unknown indication
     Dosage: FORM STRENGTH; 0.3MG/ML
     Route: 061
     Dates: start: 20240831, end: 20240831

REACTIONS (4)
  - Ocular hyperaemia [Unknown]
  - Eye pruritus [Unknown]
  - Pain [Unknown]
  - Periorbital inflammation [Unknown]

NARRATIVE: CASE EVENT DATE: 20240101
